FAERS Safety Report 16360617 (Version 1)
Quarter: 2019Q2

REPORT INFORMATION
  Report Type: Spontaneous
  Country: GB (occurrence: GB)
  Receive Date: 20190528
  Receipt Date: 20190528
  Transmission Date: 20190711
  Serious: Yes (Other)
  Sender: FDA-Public Use
  Company Number: GB-ACCORD-129811

PATIENT
  Age: 57 Year
  Sex: Female
  Weight: 67 kg

DRUGS (11)
  1. DARIFENACIN/DARIFENACIN HYDROBROMIDE [Concomitant]
     Dates: start: 20180815
  2. CLOPIDOGREL [Suspect]
     Active Substance: CLOPIDOGREL BISULFATE
     Indication: PRODUCT USED FOR UNKNOWN INDICATION
     Dates: start: 20190318
  3. FLUCONAZOLE. [Concomitant]
     Active Substance: FLUCONAZOLE
     Dosage: USE AS DIRECTED
     Dates: start: 20190115, end: 20190122
  4. CLOTRIMAZOLE. [Concomitant]
     Active Substance: CLOTRIMAZOLE
     Dosage: USE AS DIRECTED
     Dates: start: 20190325
  5. CODEINE [Concomitant]
     Active Substance: CODEINE
     Dosage: TAKE ONE OR 2 4 TIMES A DAY WHEN REQUIRED
     Dates: start: 20190318, end: 20190326
  6. MEFENAMIC ACID. [Concomitant]
     Active Substance: MEFENAMIC ACID
     Dosage: STARTING ON FIRST DAY OF MENSTRUATION
     Dates: start: 20180815, end: 20190218
  7. PARACETAMOL [Concomitant]
     Active Substance: ACETAMINOPHEN
     Dosage: TAKE TWO 4 TIMES/DAY WHEN REQUIRED
     Dates: start: 20190318, end: 20190326
  8. ACETYLSALICYLIC ACID [Concomitant]
     Active Substance: ASPIRIN
     Dates: start: 20190325
  9. DOCUSATE [Concomitant]
     Active Substance: DOCUSATE
     Dates: start: 20190318, end: 20190326
  10. OMEPRAZOLE. [Concomitant]
     Active Substance: OMEPRAZOLE
     Dosage: OD AS REQUIRED
     Dates: start: 20180815
  11. AMOXICILLIN SODIUM/CLAVULANATE POTASSIUM [Concomitant]
     Dates: start: 20190108, end: 20190115

REACTIONS (1)
  - Throat tightness [Recovered/Resolved]
